FAERS Safety Report 11668866 (Version 2)
Quarter: 2016Q1

REPORT INFORMATION
  Report Type: Spontaneous
  Country: US (occurrence: US)
  Receive Date: 20151027
  Receipt Date: 20160122
  Transmission Date: 20160525
  Serious: No
  Sender: FDA-Public Use
  Company Number: US-PFIZER INC-2015349725

PATIENT
  Age: 93 Year
  Sex: Female

DRUGS (2)
  1. GABAPENTIN. [Suspect]
     Active Substance: GABAPENTIN
     Dosage: 600 MG, 3X/DAY
  2. GABAPENTIN. [Suspect]
     Active Substance: GABAPENTIN
     Indication: PARAESTHESIA
     Dosage: 300 MG, 3X/DAY

REACTIONS (7)
  - Head discomfort [Unknown]
  - Dizziness [Unknown]
  - Feeling abnormal [Unknown]
  - Drug ineffective for unapproved indication [Unknown]
  - Nausea [Unknown]
  - Hypersomnia [Unknown]
  - Sluggishness [Unknown]
